FAERS Safety Report 12724007 (Version 2)
Quarter: 2016Q3

REPORT INFORMATION
  Report Type: Report from Study
  Country: JP (occurrence: JP)
  Receive Date: 20160908
  Receipt Date: 20160915
  Transmission Date: 20161109
  Serious: Yes (Death, Other)
  Sender: FDA-Public Use
  Company Number: PHJP2016JP013250

PATIENT
  Age: 92 Year
  Sex: Female
  Weight: 38 kg

DRUGS (5)
  1. EDIROL [Concomitant]
     Active Substance: ELDECALCITOL
     Indication: OSTEOPOROSIS
     Dosage: 1 DF, QD
     Route: 048
     Dates: end: 20141110
  2. EXELON PATCH [Suspect]
     Active Substance: RIVASTIGMINE
     Dosage: 4.6 MG, QD, PATCH 5 (CM2)
     Route: 062
     Dates: start: 20131002
  3. UNISIA [Concomitant]
     Active Substance: AMLODIPINE BESYLATE\CANDESARTAN CILEXETIL
     Indication: HYPERTENSION
     Dosage: 1 DF, QD
     Route: 048
     Dates: end: 20141110
  4. URSO//URSODEOXYCHOLIC ACID [Concomitant]
     Indication: HEPATITIS C
     Dosage: 3 DF, TID
     Route: 048
     Dates: end: 20141110
  5. EXELON PATCH [Suspect]
     Active Substance: RIVASTIGMINE
     Indication: DEMENTIA ALZHEIMER^S TYPE
     Dosage: 1.9 MG, QD, PATCH 2.5 (CM2)
     Route: 062
     Dates: start: 20130819, end: 20131001

REACTIONS (2)
  - Marasmus [Fatal]
  - Respiratory arrest [Unknown]

NARRATIVE: CASE EVENT DATE: 20141111
